FAERS Safety Report 14855653 (Version 1)
Quarter: 2018Q2

REPORT INFORMATION
  Report Type: Spontaneous
  Country: US (occurrence: US)
  Receive Date: 20180507
  Receipt Date: 20180507
  Transmission Date: 20180711
  Serious: No
  Sender: FDA-Public Use
  Company Number: US-ROCHE-1965369

PATIENT
  Sex: Male

DRUGS (1)
  1. ESBRIET [Suspect]
     Active Substance: PIRFENIDONE
     Indication: IDIOPATHIC PULMONARY FIBROSIS
     Route: 048

REACTIONS (4)
  - Fatigue [Recovering/Resolving]
  - Constipation [Recovered/Resolved]
  - Nausea [Unknown]
  - Photosensitivity reaction [Recovered/Resolved]
